FAERS Safety Report 6244382-7 (Version None)
Quarter: 2009Q2

REPORT INFORMATION
  Report Type: 
  Country: None (occurrence: None)
  Receive Date: 20090623
  Receipt Date: 20090603
  Transmission Date: 20091009
  Serious: Yes (Death)
  Sender: FDA-Public Use
  Company Number: 2009EU002235

PATIENT
  Age: 60 Year
  Sex: Female

DRUGS (3)
  1. TACROLIMUS [Suspect]
     Indication: IMMUNOSUPPRESSION
     Dosage: /D
  2. MYCOPHENOLATE MOFETIL [Suspect]
     Indication: IMMUNOSUPPRESSION
     Dosage: /D
  3. CORTICOSTEROIDS [Suspect]
     Indication: IMMUNOSUPPRESSION
     Dosage: /D

REACTIONS (1)
  - RENAL FAILURE CHRONIC [None]
